FAERS Safety Report 5375583-8 (Version None)
Quarter: 2007Q2

REPORT INFORMATION
  Report Type: 
  Country: None (occurrence: None)
  Receive Date: 20070627
  Receipt Date: 20070621
  Transmission Date: 20071010
  Serious: Yes (Hospitalization)
  Sender: FDA-Public Use
  Company Number: 2007SP012396

PATIENT
  Age: 56 Year
  Sex: Female

DRUGS (3)
  1. TEMOZOLOMIDE [Suspect]
     Indication: GLIOBLASTOMA
     Dosage: SEE IMAGE
     Route: 048
     Dates: start: 20070301
  2. TEMOZOLOMIDE [Suspect]
     Indication: GLIOBLASTOMA
     Dosage: SEE IMAGE
     Route: 048
     Dates: start: 20070501
  3. METHYLPREDNISOLONE [Suspect]
     Indication: GLIOBLASTOMA
     Dosage: 96 MG; QD; PO
     Route: 048
     Dates: start: 20070501

REACTIONS (2)
  - CONDITION AGGRAVATED [None]
  - PNEUMONIA [None]
